FAERS Safety Report 9270116 (Version 1)
Quarter: 2013Q2

REPORT INFORMATION
  Report Type: Spontaneous
  Country: US (occurrence: US)
  Receive Date: 20130503
  Receipt Date: 20130503
  Transmission Date: 20140414
  Serious: Yes (Hospitalization, Other)
  Sender: FDA-Public Use
  Company Number: US-UCBSA-084444

PATIENT
  Age: 42 Year
  Sex: Female

DRUGS (3)
  1. KEPPRA XR [Suspect]
     Indication: EPILEPSY
     Dosage: STRENGTH: 750 MG
  2. LAMICTAL [Concomitant]
     Indication: CONVULSION
     Dosage: 1 TAB IN THE AM+1 TAB IN PM
  3. NITROGLYCERIN [Concomitant]
     Indication: ANGINA PECTORIS
     Dosage: TAKEN ONLY 2 TABS
     Route: 060

REACTIONS (3)
  - Pneumonia [Recovered/Resolved]
  - Angina pectoris [Recovered/Resolved]
  - Inappropriate schedule of drug administration [Unknown]
